FAERS Safety Report 7974088-5 (Version None)
Quarter: 2011Q4

REPORT INFORMATION
  Report Type: 
  Country: None (occurrence: None)
  Receive Date: 20111213
  Receipt Date: 20111202
  Transmission Date: 20120403
  Serious: Yes (Death, Life-Threatening, Hospitalization)
  Sender: FDA-Public Use
  Company Number: JP-ABBOTT-11P-087-0875691-00

PATIENT
  Sex: Male
  Weight: 67.7 kg

DRUGS (13)
  1. EPIDURAL ANESTHETICS [Concomitant]
     Indication: ANAESTHESIA
  2. PROPOFOL [Concomitant]
     Indication: INDUCTION OF ANAESTHESIA
     Dosage: X1
     Route: 042
     Dates: start: 20101201, end: 20101201
  3. DROPERIDOL [Concomitant]
     Indication: GENERAL ANAESTHESIA
     Dosage: X1
     Route: 042
     Dates: start: 20101201, end: 20101201
  4. ROPIVACAINE HYDROCHLORIDE [Concomitant]
     Indication: EPIDURAL ANAESTHESIA
     Route: 008
     Dates: start: 20101201, end: 20101201
  5. SEVOFLURANE [Suspect]
     Indication: MAINTENANCE OF ANAESTHESIA
     Route: 055
     Dates: start: 20101201, end: 20101202
  6. EPINEPHRINE [Concomitant]
     Indication: PRODUCT USED FOR UNKNOWN INDICATION
  7. REMIFENTANIL [Concomitant]
     Indication: MAINTENANCE OF ANAESTHESIA
     Dosage: DRIP INFUSION, ULTIVA 2 MG
     Route: 050
     Dates: start: 20101201, end: 20101201
  8. PHENYLEPHRINE HYDROCHLORIDE [Concomitant]
     Indication: HYPOTENSION
     Dosage: X20
     Dates: start: 20101201, end: 20101201
  9. CEFAZOLIN SODIUM [Concomitant]
     Indication: INFECTION PROPHYLAXIS
     Dosage: DRIP INFUSION X3
     Dates: start: 20101201, end: 20101201
  10. ROCURONIUM BROMIDE [Concomitant]
     Indication: HYPOTONIA
     Dosage: X16
     Dates: start: 20101201, end: 20101202
  11. FENTANYL [Concomitant]
     Indication: MAINTENANCE OF ANAESTHESIA
     Dosage: 0.1 MG ^JANSSEN^
     Route: 042
     Dates: start: 20101201, end: 20101201
  12. FLURBIPROFEN [Concomitant]
     Indication: PERIOPERATIVE ANALGESIA
     Dosage: X1
     Route: 042
     Dates: start: 20101201, end: 20101201
  13. EPHEDRINE HYDROCHLORIDE [Concomitant]
     Indication: HYPOTENSION
     Dosage: X16
     Route: 042
     Dates: start: 20101201, end: 20101201

REACTIONS (2)
  - STRESS CARDIOMYOPATHY [None]
  - CARDIAC ARREST [None]
